FAERS Safety Report 8162298-6 (Version None)
Quarter: 2012Q1

REPORT INFORMATION
  Report Type: 
  Country: None (occurrence: None)
  Receive Date: 20120103
  Receipt Date: 20111003
  Transmission Date: 20120608
  Serious: No
  Sender: FDA-Public Use
  Company Number: AE-2011-001956

PATIENT
  Age: 55 Year
  Sex: Male

DRUGS (5)
  1. INTERFERON [Concomitant]
  2. IBUPROFEN [Concomitant]
  3. RIBAVIRIN [Concomitant]
  4. INCIVEK [Suspect]
     Dosage: 2250 MG (750 MG, 2 TABS ORAL, T.I.D.), ORAL
     Route: 048
     Dates: start: 20110930
  5. DIPHENHYDRAMINE HCL [Concomitant]

REACTIONS (4)
  - SOMNOLENCE [None]
  - DIARRHOEA [None]
  - NAUSEA [None]
  - DIZZINESS [None]
